FAERS Safety Report 7963640-9 (Version None)
Quarter: 2011Q4

REPORT INFORMATION
  Report Type: 
  Country: None (occurrence: None)
  Receive Date: 20111208
  Receipt Date: 20111203
  Transmission Date: 20120403
  Serious: No
  Sender: FDA-Public Use
  Company Number: US-BAYER-2011-117226

PATIENT
  Age: 61 Year
  Sex: Female
  Weight: 50 kg

DRUGS (3)
  1. ALEVE (CAPLET) [Suspect]
     Indication: SINUSITIS
     Dosage: 2 U, UNK
     Route: 048
     Dates: start: 20111202
  2. LISINOPRIL [Concomitant]
  3. SYNTHROID [Concomitant]

REACTIONS (1)
  - NO ADVERSE EVENT [None]
